FAERS Safety Report 20793990 (Version 4)
Quarter: 2022Q2

REPORT INFORMATION
  Report Type: Spontaneous
  Country: US (occurrence: US)
  Receive Date: 20220506
  Receipt Date: 20220603
  Transmission Date: 20220721
  Serious: Yes (Death, Hospitalization)
  Sender: FDA-Public Use
  Company Number: US-UNITED THERAPEUTICS-UNT-2022-009706

PATIENT
  Age: 73 Year
  Sex: Female
  Weight: 65.306 kg

DRUGS (4)
  1. REMODULIN [Suspect]
     Active Substance: TREPROSTINIL
     Indication: Pulmonary arterial hypertension
     Dosage: UNK, CONTINUING
     Route: 058
     Dates: start: 20220331
  2. REMODULIN [Suspect]
     Active Substance: TREPROSTINIL
     Dosage: 0.005 ?G/KG, CONTINUING
     Route: 058
  3. SILDENAFIL [Concomitant]
     Active Substance: SILDENAFIL
     Indication: Product used for unknown indication
     Dosage: UNK
     Route: 065
  4. OPSUMIT [Concomitant]
     Active Substance: MACITENTAN
     Indication: Product used for unknown indication
     Dosage: UNK
     Route: 065

REACTIONS (14)
  - General physical health deterioration [Fatal]
  - Fall [Recovered/Resolved]
  - Dyspnoea exertional [Unknown]
  - Nausea [Unknown]
  - Retching [Unknown]
  - Productive cough [Unknown]
  - Hypotension [Unknown]
  - Diarrhoea [Unknown]
  - Dyspepsia [Unknown]
  - Dysphagia [Unknown]
  - Dizziness postural [Unknown]
  - Weight decreased [Unknown]
  - Oxygen saturation abnormal [Unknown]
  - Malaise [Unknown]

NARRATIVE: CASE EVENT DATE: 20220401
